FAERS Safety Report 4625364-5 (Version None)
Quarter: 2005Q2

REPORT INFORMATION
  Report Type: 
  Country: None (occurrence: None)
  Receive Date: 20050401
  Receipt Date: 20050323
  Transmission Date: 20051028
  Serious: Yes (Hospitalization)
  Sender: FDA-Public Use
  Company Number: CH-GLAXOSMITHKLINE-B0376363A

PATIENT
  Age: 45 Year
  Sex: Male

DRUGS (1)
  1. ZYBAN [Suspect]
     Indication: TOBACCO ABUSE
     Dosage: 150MG PER DAY
     Route: 048
     Dates: start: 20050125, end: 20050211

REACTIONS (14)
  - ABNORMAL BEHAVIOUR [None]
  - AMNESIA [None]
  - BLOOD PROLACTIN INCREASED [None]
  - CEREBRAL ATROPHY [None]
  - CLONUS [None]
  - CONFUSIONAL STATE [None]
  - CONVULSION [None]
  - CRYING [None]
  - CYANOSIS [None]
  - DISORIENTATION [None]
  - DYSKINESIA [None]
  - GRAND MAL CONVULSION [None]
  - POSTURE ABNORMAL [None]
  - RESPIRATION ABNORMAL [None]
